FAERS Safety Report 7517603-8 (Version None)
Quarter: 2011Q2

REPORT INFORMATION
  Report Type: 
  Country: None (occurrence: None)
  Receive Date: 20110601
  Receipt Date: 20110519
  Transmission Date: 20111010
  Serious: Yes (Hospitalization, Other)
  Sender: FDA-Public Use
  Company Number: US-ELI_LILLY_AND_COMPANY-US201008005151

PATIENT
  Sex: Female

DRUGS (12)
  1. FORTEO [Suspect]
     Indication: OSTEOPOROSIS
     Dosage: 20 UG, DAILY (1/D)
     Dates: start: 20100101
  2. LAMOTRIGINE [Concomitant]
     Dosage: 100 MG, 2/D
  3. FISH OIL [Concomitant]
     Dosage: 1200 MG, DAILY (1/D)
  4. VITAMIN B-12 [Concomitant]
     Dosage: 500 MG, QD
  5. FORTEO [Suspect]
     Dosage: 20 UG, DAILY (1/D)
     Dates: end: 20110426
  6. TOPIRAMATE [Concomitant]
     Dosage: 100 MG, BID
  7. VITAMINS [Concomitant]
     Dosage: 1000 IU, UNK
  8. CALCIUM CARBONATE [Concomitant]
     Dosage: 600 MG, BID
  9. FORTEO [Suspect]
     Dosage: 20 UG, QD
  10. FEXOFENADINE [Concomitant]
     Indication: HYPERSENSITIVITY
     Dosage: 60 MG, DAILY (1/D)
  11. PANTOPRAZOLE [Concomitant]
     Dosage: 40 MG, QD
  12. SIMVASTATIN [Concomitant]
     Dosage: 20 MG, QD

REACTIONS (5)
  - BLOOD CHOLESTEROL INCREASED [None]
  - NEPHROLITHIASIS [None]
  - BALANCE DISORDER [None]
  - DIZZINESS [None]
  - POLYP [None]
